FAERS Safety Report 17416525 (Version 1)
Quarter: 2020Q1

REPORT INFORMATION
  Report Type: Report from Study
  Country: DE (occurrence: DE)
  Receive Date: 20200213
  Receipt Date: 20200213
  Transmission Date: 20200409
  Serious: Yes (Hospitalization)
  Sender: FDA-Public Use
  Company Number: DE-JNJFOC-20200212150

PATIENT
  Age: 7 Decade
  Sex: Female

DRUGS (5)
  1. METHOTREXATE. [Concomitant]
     Active Substance: METHOTREXATE
  2. METHOTREXATE. [Concomitant]
     Active Substance: METHOTREXATE
  3. METHOTREXATE. [Concomitant]
     Active Substance: METHOTREXATE
  4. REMICADE [Suspect]
     Active Substance: INFLIXIMAB
     Indication: RHEUMATOID ARTHRITIS
     Route: 042
     Dates: start: 201605
  5. METHOTREXATE. [Concomitant]
     Active Substance: METHOTREXATE

REACTIONS (1)
  - Venous thrombosis [Unknown]

NARRATIVE: CASE EVENT DATE: 20171120
